FAERS Safety Report 12866066 (Version 2)
Quarter: 2016Q4

REPORT INFORMATION
  Report Type: Spontaneous
  Country: JP (occurrence: JP)
  Receive Date: 20161020
  Receipt Date: 20161026
  Transmission Date: 20170207
  Serious: Yes (Other)
  Sender: FDA-Public Use
  Company Number: JP-GLAXOSMITHKLINE-JP2016JPN141396

PATIENT
  Age: 88 Year
  Sex: Male
  Weight: 51 kg

DRUGS (11)
  1. PALNAC [Concomitant]
     Active Substance: TAMSULOSIN
     Dosage: 0.2 MG, QD
  2. MERISLON [Concomitant]
     Active Substance: BETAHISTINE MESILATE
     Dosage: 1 DF, TID
     Dates: start: 20160826
  3. AMLODIPINE [Concomitant]
     Active Substance: AMLODIPINE BESYLATE
     Dosage: 2.5 MG, QD
  4. URIEF [Concomitant]
     Active Substance: SILODOSIN
     Dosage: 4 MG, BID
  5. ZOPICLONE [Concomitant]
     Active Substance: ZOPICLONE
     Dosage: 7.5 MG, QD
  6. TOFRANIL [Concomitant]
     Active Substance: IMIPRAMINE HYDROCHLORIDE
     Dosage: 10 MG, QD
  7. FERROUS SULFATE. [Concomitant]
     Active Substance: FERROUS SULFATE
     Dosage: 1 DF, BID
     Dates: start: 20160830
  8. SENNOSIDE [Concomitant]
     Active Substance: SENNOSIDES
     Dosage: 24 MG, QD
  9. AVOLVE [Suspect]
     Active Substance: DUTASTERIDE
     Indication: BENIGN PROSTATIC HYPERPLASIA
     Dosage: 0.5 MG, QD
     Route: 048
     Dates: start: 20160910
  10. PANTETHINE [Concomitant]
     Active Substance: PANTETHINE
     Dosage: 1 G, TID
  11. AMLODIPINE [Concomitant]
     Active Substance: AMLODIPINE BESYLATE
     Dosage: 2.5 MG, QD

REACTIONS (1)
  - Hypokalaemia [Unknown]

NARRATIVE: CASE EVENT DATE: 20160927
